FAERS Safety Report 9824654 (Version 2)
Quarter: 2014Q1

REPORT INFORMATION
  Report Type: Spontaneous
  Country: US (occurrence: US)
  Receive Date: 20140117
  Receipt Date: 20140117
  Transmission Date: 20141002
  Serious: No
  Sender: FDA-Public Use
  Company Number: US-GILEAD-2011-0039073

PATIENT
  Age: 29 Year
  Sex: Female

DRUGS (2)
  1. LETAIRIS [Suspect]
     Indication: PRODUCT USED FOR UNKNOWN INDICATION
     Route: 048
     Dates: start: 201101
  2. TYVASO [Concomitant]

REACTIONS (3)
  - Dizziness [Not Recovered/Not Resolved]
  - Initial insomnia [Unknown]
  - Fatigue [Not Recovered/Not Resolved]
